FAERS Safety Report 4490833-8 (Version None)
Quarter: 2004Q4

REPORT INFORMATION
  Report Type: 
  Country: None (occurrence: None)
  Receive Date: 20041027
  Receipt Date: 20041013
  Transmission Date: 20050328
  Serious: Yes (Hospitalization)
  Sender: FDA-Public Use
  Company Number: 2004SE05679

PATIENT
  Age: 64 Year
  Sex: Male
  Weight: 76 kg

DRUGS (2)
  1. TCV-116 (PREMEDICATION) [Suspect]
     Indication: ESSENTIAL HYPERTENSION
     Dosage: 8 MG QD PO
     Route: 048
     Dates: start: 20040927, end: 20041005
  2. FLUITRAN [Suspect]
     Indication: ESSENTIAL HYPERTENSION
     Dosage: 1 MG PO
     Route: 048
     Dates: start: 20040927, end: 20041005

REACTIONS (3)
  - BLOOD PRESSURE SYSTOLIC DECREASED [None]
  - GASTRIC CANCER [None]
  - GASTRIC ULCER HAEMORRHAGE [None]
